FAERS Safety Report 16474033 (Version 1)
Quarter: 2019Q2

REPORT INFORMATION
  Report Type: Report from Study
  Country: JP (occurrence: JP)
  Receive Date: 20190625
  Receipt Date: 20190625
  Transmission Date: 20190711
  Serious: Yes (Death)
  Sender: FDA-Public Use
  Company Number: JP-DSJP-DSJ-2019-123052

PATIENT

DRUGS (21)
  1. FUROSEMIDE. [Concomitant]
     Active Substance: FUROSEMIDE
     Indication: CARDIAC FAILURE CONGESTIVE
     Dosage: 20MG/DAY, AFTER BREAKFAST
     Route: 048
     Dates: start: 20140606
  2. BAYASPIRIN [Concomitant]
     Active Substance: ASPIRIN
     Indication: INFARCTION
  3. PIMOBENDAN [Concomitant]
     Active Substance: PIMOBENDAN
     Indication: CARDIAC FAILURE CONGESTIVE
     Dosage: 5MG/DAY, AFTER BREAKFAST,DINNER
     Dates: start: 20140605
  4. NICORANDIL [Concomitant]
     Active Substance: NICORANDIL
     Indication: ANGINA PECTORIS
     Dosage: 10MG/DAY, AFTER BREAKFAST,DINNER
     Route: 048
     Dates: start: 20140606
  5. BAYASPIRIN [Concomitant]
     Active Substance: ASPIRIN
     Indication: THROMBOSIS PROPHYLAXIS
     Dosage: 100MG/DAY,AFTER LUNCH
     Route: 048
     Dates: start: 20140606
  6. CARVEDILOL. [Concomitant]
     Active Substance: CARVEDILOL
     Indication: HYPERTENSION
     Dosage: 5MG/DAY, AFTER BREAKFAST,DINNER
     Route: 048
     Dates: start: 20161024
  7. NEXIUM [Concomitant]
     Active Substance: ESOMEPRAZOLE MAGNESIUM
     Indication: DUODENAL ULCER
     Dosage: 20MG/DAY, AFTER BREAKFAST
     Route: 048
     Dates: start: 20140620
  8. SAMSCA [Concomitant]
     Active Substance: TOLVAPTAN
     Indication: CARDIAC FAILURE CONGESTIVE
     Dosage: 7.5MG/DAY, AFTER BREAKFAST
     Route: 048
     Dates: start: 20180417
  9. RINDERON V [Concomitant]
     Active Substance: BETAMETHASONE VALERATE
     Indication: SKIN ULCER
     Dosage: 1-2TIMES/DAY
     Route: 050
     Dates: start: 20180515
  10. ISODINE SUGAR [Concomitant]
     Indication: SKIN ULCER
     Dosage: 1-2TIMES/DAY
     Route: 050
     Dates: start: 20190522
  11. PROPETO [Concomitant]
     Active Substance: PETROLATUM
     Indication: SKIN ULCER
     Dosage: 1-2TIMES/DAY
     Route: 050
     Dates: start: 20170310
  12. FLUNITRAZEPAM [Concomitant]
     Active Substance: FLUNITRAZEPAM
     Indication: ANXIETY DISORDER
     Dosage: 1MG/DAY, BEFORE BEDTIME
     Route: 048
     Dates: start: 20140619
  13. MAGNESIUM OXIDE. [Concomitant]
     Active Substance: MAGNESIUM OXIDE
     Indication: CONSTIPATION
     Dosage: 330MG/DAY, AFTER DINNER
     Route: 048
     Dates: start: 20180509
  14. GEBEN [Concomitant]
     Active Substance: SILVER SULFADIAZINE
     Indication: SKIN ULCER
     Dosage: 1-2TIMES/DAY
     Route: 050
     Dates: start: 20180420
  15. DU-176B [Suspect]
     Active Substance: EDOXABAN TOSYLATE
     Indication: ATRIAL FIBRILLATION
     Dosage: UNK UNK, QD
     Route: 065
     Dates: start: 20180530, end: 20180605
  16. DU-176B [Suspect]
     Active Substance: EDOXABAN TOSYLATE
     Dosage: UNK UNK, QD
     Route: 065
     Dates: start: 20180611
  17. ZOLPIDEM TARTRATE. [Concomitant]
     Active Substance: ZOLPIDEM TARTRATE
     Indication: ANXIETY DISORDER
     Dosage: 5MG/DAY, BEFORE BEDTIME
     Route: 048
     Dates: start: 20140627
  18. ETIZOLAM [Concomitant]
     Active Substance: ETIZOLAM
     Indication: ANXIETY DISORDER
     Dosage: 0.5MG/DAY, BEFORE BEDTIME
     Route: 048
     Dates: start: 20140714
  19. SPIRONOLACTONE. [Concomitant]
     Active Substance: SPIRONOLACTONE
     Indication: HYPERTENSION
     Dosage: 25MG/DAY, AFTER BREAKFAST
     Route: 048
     Dates: start: 20140531
  20. LOSARTAN POTASSIUM. [Concomitant]
     Active Substance: LOSARTAN POTASSIUM
     Indication: HYPERTENSION
     Dosage: 25MG/DAY, AFTER LUNCH
     Route: 048
     Dates: start: 20140606
  21. CALONAL [Concomitant]
     Active Substance: ACETAMINOPHEN
     Indication: PERIPHERAL ARTERIAL OCCLUSIVE DISEASE
     Dosage: 400MG/DAY, AFTER BREAKFAST,DINNER
     Route: 048
     Dates: start: 20180622

REACTIONS (1)
  - Sudden death [Fatal]

NARRATIVE: CASE EVENT DATE: 20190615
